FAERS Safety Report 5261119-9 (Version None)
Quarter: 2007Q1

REPORT INFORMATION
  Report Type: 
  Country: None (occurrence: None)
  Receive Date: 20070309
  Receipt Date: 20070302
  Transmission Date: 20070707
  Serious: Yes (Other)
  Sender: FDA-Public Use
  Company Number: US-ELI_LILLY_AND_COMPANY-US200703000628

PATIENT
  Sex: Female

DRUGS (3)
  1. HUMULIN R [Suspect]
     Indication: DIABETES MELLITUS
  2. HUMULIN 70/30 [Suspect]
     Indication: DIABETES MELLITUS
  3. ANTIHYPERTENSIVES [Concomitant]

REACTIONS (4)
  - CARDIAC DISORDER [None]
  - MULTIPLE ALLERGIES [None]
  - MYOCARDIAL INFARCTION [None]
  - NEUROPATHY [None]
